FAERS Safety Report 17484212 (Version 1)
Quarter: 2020Q1

REPORT INFORMATION
  Report Type: Spontaneous
  Country: DE (occurrence: DE)
  Receive Date: 20200302
  Receipt Date: 20200302
  Transmission Date: 20200409
  Serious: Yes (Other)
  Sender: FDA-Public Use
  Company Number: DE-BAYER-2020-032587

PATIENT
  Age: 60 Year
  Sex: Female

DRUGS (3)
  1. GADOVIST [Suspect]
     Active Substance: GADOBUTROL
     Dosage: 1 TIME GADOVIST
     Dates: start: 20060202, end: 20161221
  2. GADOLINIUM IN UNSPECIFIED DRUG [Suspect]
     Active Substance: GADOLINIUM
     Dosage: 5 MRTS OVER THE PAST 10 YEARS
  3. GADOVIST [Suspect]
     Active Substance: GADOBUTROL
     Dosage: UNK

REACTIONS (8)
  - Myalgia [None]
  - Disturbance in attention [None]
  - Pain [None]
  - Paraesthesia [None]
  - Muscle twitching [None]
  - Tinnitus [None]
  - Fatigue [None]
  - Contrast media toxicity [None]

NARRATIVE: CASE EVENT DATE: 20161221
